FAERS Safety Report 9948979 (Version 1)
Quarter: 2014Q1

REPORT INFORMATION
  Report Type: Report from Study
  Country: US (occurrence: US)
  Receive Date: 20140304
  Receipt Date: 20140304
  Transmission Date: 20141002
  Serious: Yes (Hospitalization, Other)
  Sender: FDA-Public Use
  Company Number: US-ROCHE-1354256

PATIENT
  Age: 45 Year
  Sex: Female

DRUGS (17)
  1. ACTEMRA [Suspect]
     Indication: RHEUMATOID ARTHRITIS
     Route: 042
     Dates: start: 2010, end: 201210
  2. ACTEMRA [Interacting]
     Route: 042
     Dates: start: 201307
  3. ACTEMRA [Interacting]
     Route: 042
     Dates: start: 201311
  4. ACTEMRA [Interacting]
     Route: 042
     Dates: start: 201312
  5. ACTEMRA [Interacting]
     Route: 042
     Dates: start: 201401
  6. ACTEMRA [Interacting]
     Route: 042
     Dates: start: 20140207
  7. RITUXAN [Suspect]
     Indication: RHEUMATOID ARTHRITIS
     Route: 042
  8. RITUXAN [Suspect]
     Indication: JUVENILE IDIOPATHIC ARTHRITIS
     Route: 042
  9. OMEPRAZOLE [Interacting]
     Indication: PRODUCT USED FOR UNKNOWN INDICATION
     Route: 065
  10. METHOTREXATE [Suspect]
     Indication: RHEUMATOID ARTHRITIS
     Route: 030
  11. METHOTREXATE [Suspect]
     Indication: JUVENILE IDIOPATHIC ARTHRITIS
  12. NORCO [Concomitant]
     Dosage: PRN,  1/2 TAB
     Route: 065
  13. PRILOSEC OTC [Concomitant]
     Route: 065
  14. ATIVAN [Concomitant]
     Indication: NAUSEA
     Route: 065
  15. AMBIEN [Concomitant]
  16. DIAMOX SEQUELS [Concomitant]
     Indication: BENIGN INTRACRANIAL HYPERTENSION
     Route: 065
  17. PROTONIX (PANTOPRAZOLE SODIUM) [Concomitant]

REACTIONS (6)
  - Drug hypersensitivity [Recovered/Resolved]
  - Blood cholesterol increased [Not Recovered/Not Resolved]
  - Drug specific antibody present [Unknown]
  - Nasopharyngitis [Unknown]
  - Quality of life decreased [Unknown]
  - Drug interaction [Unknown]
